FAERS Safety Report 9158873 (Version 1)
Quarter: 2013Q1

REPORT INFORMATION
  Report Type: Spontaneous
  Country: HU (occurrence: None)
  Receive Date: 20130311
  Receipt Date: 20130311
  Transmission Date: 20140127
  Serious: Yes (Death)
  Sender: FDA-Public Use
  Company Number: TPA2013A01959

PATIENT
  Age: 71 Year
  Sex: Male

DRUGS (5)
  1. ADENURIC [Suspect]
     Indication: TUMOUR LYSIS SYNDROME
     Dates: start: 20130214, end: 20130220
  2. ALLOPURINOL [Suspect]
     Route: 048
     Dates: start: 20130214, end: 20130220
  3. EDNYT HCT (HYDROCHLOROTHIAZIDE, ENALAPRIL MALEATE) [Concomitant]
  4. TELVIRAN (ACICLOVIR) [Concomitant]
  5. SUMETROLIM (SULFAMETHOXAZOLE, TRIMETHOPRIM) [Concomitant]

REACTIONS (2)
  - Bronchitis [None]
  - General physical health deterioration [None]
